FAERS Safety Report 19900307 (Version 1)
Quarter: 2021Q3

REPORT INFORMATION
  Report Type: Spontaneous
  Country: BR (occurrence: BR)
  Receive Date: 20210929
  Receipt Date: 20210929
  Transmission Date: 20211014
  Serious: Yes (Other)
  Sender: FDA-Public Use
  Company Number: NVSC2021BR144213

PATIENT
  Age: 27 Year
  Sex: Male
  Weight: 70 kg

DRUGS (5)
  1. PURAN [Concomitant]
     Active Substance: LEVOTHYROXINE SODIUM
     Indication: THYROID PAIN
     Dosage: 1 DF, QD
     Route: 048
  2. TEGRETOL [Suspect]
     Active Substance: CARBAMAZEPINE
     Dosage: UNK UNK, BID, (3ML IN THE MORNING AND 4ML IN THE EVENING)
     Route: 048
     Dates: start: 202108
  3. TEGRETOL [Suspect]
     Active Substance: CARBAMAZEPINE
     Indication: SEIZURE
     Dosage: UNK UNK, BID, (3ML IN THE MORNING AND 4ML IN THE EVENING)
     Route: 048
     Dates: start: 2005, end: 202107
  4. TEGRETOL [Suspect]
     Active Substance: CARBAMAZEPINE
     Indication: CEREBRAL CONGESTION
     Dosage: UNK UNK, BID
     Route: 065
     Dates: start: 2005
  5. TEGRETOL [Suspect]
     Active Substance: CARBAMAZEPINE
     Dosage: UNK UNK, BID, (3ML IN THE MORNING AND 4ML IN THE EVENING)
     Route: 048
     Dates: start: 202107, end: 202108

REACTIONS (7)
  - Weight gain poor [Not Recovered/Not Resolved]
  - Thyroid disorder [Not Recovered/Not Resolved]
  - Hepatic steatosis [Not Recovered/Not Resolved]
  - Depression [Not Recovered/Not Resolved]
  - Drug ineffective [Recovering/Resolving]
  - Nervousness [Not Recovered/Not Resolved]
  - Swelling face [Not Recovered/Not Resolved]

NARRATIVE: CASE EVENT DATE: 202107
